FAERS Safety Report 8791972 (Version 1)
Quarter: 2012Q4

REPORT INFORMATION
  Report Type: 
  Country: US (occurrence: US)
  Receive Date: 20120918
  Receipt Date: 20120918
  Transmission Date: 20130627
  Serious: No
  Sender: FDA-Public Use
  Company Number: US-B.I. PHARMACEUTICALS,INC./RIDGEFIELD-2012-BP-22265BP

PATIENT

DRUGS (7)
  1. PRADAXA [Suspect]
     Indication: CEREBROVASCULAR ACCIDENT PROPHYLAXIS
     Dosage: 300 mg
     Route: 048
     Dates: start: 201105
  2. PRADAXA [Suspect]
     Indication: ATRIAL FIBRILLATION
  3. SPIRIVA [Concomitant]
  4. FOSAMAX [Concomitant]
  5. METOPROLOL [Concomitant]
  6. LIPITOR [Concomitant]
  7. DIOVAN [Concomitant]

REACTIONS (2)
  - Malaise [Recovered/Resolved]
  - Liver function test abnormal [Recovered/Resolved]
